FAERS Safety Report 20608057 (Version 1)
Quarter: 2022Q1

REPORT INFORMATION
  Report Type: Spontaneous
  Country: US (occurrence: US)
  Receive Date: 20220317
  Receipt Date: 20220317
  Transmission Date: 20220423
  Serious: No
  Sender: FDA-Public Use
  Company Number: US-PFIZER INC-2019012782

PATIENT
  Age: 78 Year
  Sex: Male
  Weight: 97.07 kg

DRUGS (2)
  1. LYRICA [Suspect]
     Active Substance: PREGABALIN
     Indication: Neuropathy peripheral
     Dosage: 300 MG, 2X/DAY
     Route: 048
  2. LYRICA [Suspect]
     Active Substance: PREGABALIN
     Indication: Spondylolisthesis
     Dosage: 300MG, GOT TO TAKE ONE IN THE MORNING AND ONE AT NIGHT BY MOUTH
     Route: 048

REACTIONS (5)
  - Underdose [Unknown]
  - Gait disturbance [Unknown]
  - Pain in extremity [Unknown]
  - Emotional distress [Unknown]
  - Pain [Unknown]
